FAERS Safety Report 8276573 (Version 8)
Quarter: 2013Q1

REPORT INFORMATION
  Report Type: Report from Study
  Country: DE (occurrence: DE)
  Receive Date: 20111206
  Receipt Date: 20130208
  Transmission Date: 20140127
  Serious: Yes (Hospitalization)
  Sender: FDA-Public Use
  Company Number: DE-BRISTOL-MYERS SQUIBB COMPANY-16267163

PATIENT
  Age: 68 Year
  Sex: Female
  Weight: 50 kg

DRUGS (15)
  1. ERBITUX SOLN FOR INF [Suspect]
     Indication: COLORECTAL CANCER METASTATIC
     Dosage: 400MG/M2 17AUG11-; 250MG/M2 24AUG-07SEP11(14DAYS),09-23NOV11:250MG(14DAYS).DISCONT 28NOV12(103DYS).
     Route: 042
     Dates: start: 20110817, end: 20111123
  2. BISOHEXAL [Concomitant]
     Indication: HYPERTENSION
     Route: 048
     Dates: start: 20110901
  3. APONAL [Concomitant]
     Indication: SEDATION
     Route: 048
     Dates: start: 20110711, end: 20111210
  4. PANTOZOL [Concomitant]
     Route: 048
  5. IBUPROFEN [Concomitant]
     Route: 048
  6. 5-FLUOROURACIL [Concomitant]
     Indication: COLORECTAL CANCER METASTATIC
     Dosage: TOT:590MGBOLUS,2300MG/M2(TOT:3400MG)ON 17-31AUG,5OCT11-UNK,2NV-UNK,16NV-UNK,1DEC-UK,14DEC11(560MG)
     Route: 042
     Dates: start: 20110817
  7. FOLINIC ACID [Concomitant]
     Indication: COLORECTAL CANCER METASTATIC
     Route: 042
     Dates: start: 20111201
  8. OXALIPLATIN [Concomitant]
     Indication: COLORECTAL CANCER METASTATIC
     Dosage: TOT:125MG:17-31AUG11(14DY),16NV11-UNK,1DEC11-UNK,110MG(14-DEC11-UNK)
     Route: 042
     Dates: start: 20110817
  9. FOLINATE [Concomitant]
     Indication: COLORECTAL CANCER METASTATIC
     Dosage: TOT:590MG,17AG11,5OT11-UK,2NV11-UK,16NV-UK,1DEC11-UK. TOT:560MG 14DEC11
     Route: 042
     Dates: start: 20110817
  10. FENISTIL [Concomitant]
     Indication: PREMEDICATION
     Dosage: 1DF+1 AMP. 17AUG11-31AUG11, 14DEC11
     Dates: start: 20110817
  11. DEXAMETHASONE [Concomitant]
     Indication: PREMEDICATION
     Dosage: 17AUG11-31AUG11, 14DEC11
     Dates: start: 20110817
  12. ONDANSETRON [Concomitant]
     Indication: PREMEDICATION
     Dosage: 17AUG11-31AUG11, 14DEC11
     Dates: start: 20110817
  13. KEVATRIL [Concomitant]
     Indication: PREMEDICATION
     Dosage: 2 MG SHORT INFUSION
     Route: 042
     Dates: start: 20111201
  14. ANTIHISTAMINE NOS [Concomitant]
     Indication: PREMEDICATION
     Dates: start: 20110817, end: 20110907
  15. CORTICOSTEROID [Concomitant]
     Indication: PREMEDICATION
     Route: 042
     Dates: start: 20110817, end: 20110907

REACTIONS (4)
  - Escherichia urinary tract infection [Recovered/Resolved with Sequelae]
  - Diarrhoea [Recovered/Resolved]
  - Vomiting [Recovered/Resolved]
  - Vertigo [Recovered/Resolved]
